FAERS Safety Report 6186303-1 (Version None)
Quarter: 2009Q2

REPORT INFORMATION
  Report Type: 
  Country: None (occurrence: None)
  Receive Date: 20090507
  Receipt Date: 20090507
  Transmission Date: 20091009
  Serious: Yes (Congenital Anomaly)
  Sender: FDA-Public Use
  Company Number: None

PATIENT
  Sex: Female
  Weight: 77.7919 kg

DRUGS (1)
  1. SOLARAY 150 TABLETS [Suspect]
     Indication: PREGNANCY
     Dosage: 5 PER DAY PO
     Route: 048
     Dates: start: 20080801, end: 20090506

REACTIONS (3)
  - DRUG LABEL CONFUSION [None]
  - MEDICATION ERROR [None]
  - PREGNANCY [None]
